FAERS Safety Report 12310868 (Version 1)
Quarter: 2016Q2

REPORT INFORMATION
  Report Type: Spontaneous
  Country: FR (occurrence: FR)
  Receive Date: 20160427
  Receipt Date: 20160427
  Transmission Date: 20160815
  Serious: Yes (Other)
  Sender: FDA-Public Use
  Company Number: ALCN2016FR002738

PATIENT
  Age: 4 Year
  Sex: Male

DRUGS (2)
  1. ANTIBIO SYNALAR [Suspect]
     Active Substance: FLUOCINOLONE ACETONIDE\NEOMYCIN SULFATE\POLYMYXIN B SULFATE
     Indication: CONJUNCTIVITIS
     Dosage: 1 GTT, QD
     Route: 047
     Dates: start: 20160324
  2. CILOXAN [Suspect]
     Active Substance: CIPROFLOXACIN HYDROCHLORIDE
     Indication: CONJUNCTIVITIS
     Dosage: UNK UNK, NO TREATMENT
     Route: 047

REACTIONS (4)
  - Eye irritation [Unknown]
  - Wrong drug administered [Recovered/Resolved]
  - Incorrect route of drug administration [Recovered/Resolved]
  - Eye pain [Recovered/Resolved]

NARRATIVE: CASE EVENT DATE: 20160324
